FAERS Safety Report 18776416 (Version 1)
Quarter: 2021Q1

REPORT INFORMATION
  Report Type: Spontaneous
  Country: DE (occurrence: DE)
  Receive Date: 20210122
  Receipt Date: 20210122
  Transmission Date: 20210419
  Serious: Yes (Other)
  Sender: FDA-Public Use
  Company Number: DE-MYLANLABS-2021M1003576

PATIENT
  Age: 57 Year
  Sex: Male
  Weight: 85 kg

DRUGS (1)
  1. EZETIMIBE. [Suspect]
     Active Substance: EZETIMIBE
     Indication: CORONARY ARTERY DISEASE
     Dosage: 10 MILLIGRAM, QD
     Route: 048
     Dates: start: 202001

REACTIONS (4)
  - Myalgia [Recovered/Resolved]
  - Erectile dysfunction [Recovered/Resolved]
  - Malaise [Recovered/Resolved]
  - Somnolence [Recovered/Resolved]
